FAERS Safety Report 6531146-X (Version None)
Quarter: 2010Q1

REPORT INFORMATION
  Report Type: 
  Country: None (occurrence: None)
  Receive Date: 20100108
  Receipt Date: 20100101
  Transmission Date: 20100710
  Serious: Yes (Other)
  Sender: FDA-Public Use
  Company Number: US-AMGEN-QUU383231

PATIENT
  Sex: Male

DRUGS (13)
  1. ARANESP [Suspect]
     Indication: ANAEMIA
     Dates: start: 20080101, end: 20091201
  2. PROCRIT [Suspect]
     Indication: ANAEMIA
     Route: 065
  3. ASPIRIN [Concomitant]
  4. DETROL [Concomitant]
  5. DILTIAZEM [Concomitant]
  6. LEVOXYL [Concomitant]
  7. LORATADINE [Concomitant]
  8. MAGNESIUM [Concomitant]
  9. OMEPRAZOLE [Concomitant]
  10. TERAZOSIN HCL [Concomitant]
  11. TRIAMTERENE AND HYDROCHLOROTHIAZIDE [Concomitant]
  12. FENOFIBRATE [Concomitant]
  13. WARFARIN [Concomitant]

REACTIONS (3)
  - ACUTE FEBRILE NEUTROPHILIC DERMATOSIS [None]
  - APLASIA PURE RED CELL [None]
  - EXTRAMEDULLARY HAEMOPOIESIS [None]
